FAERS Safety Report 9608982 (Version 2)
Quarter: 2013Q4

REPORT INFORMATION
  Report Type: Report from Study
  Country: VE (occurrence: VE)
  Receive Date: 20131009
  Receipt Date: 20131030
  Transmission Date: 20140711
  Serious: Yes (Other)
  Sender: FDA-Public Use
  Company Number: VE-ROCHE-1286771

PATIENT
  Age: 69 Year
  Sex: Female

DRUGS (5)
  1. XOLAIR [Suspect]
     Indication: ASTHMA
     Dosage: LAST DOSE OF XOLAIR RECEIVED ON 06/SEP/2013.
     Route: 058
     Dates: start: 201301
  2. XOLAIR [Suspect]
     Route: 065
     Dates: start: 20130906
  3. ALOVENT [Concomitant]
  4. APROVEL [Concomitant]
  5. MONTELUKAST SODIUM [Concomitant]

REACTIONS (2)
  - Asthma [Recovered/Resolved]
  - Respiratory tract infection [Recovering/Resolving]
